FAERS Safety Report 14600896 (Version 1)
Quarter: 2018Q1

REPORT INFORMATION
  Report Type: Spontaneous
  Country: US (occurrence: US)
  Receive Date: 20180303
  Receipt Date: 20180303
  Transmission Date: 20180509
  Serious: Yes (Hospitalization)
  Sender: FDA-Public Use
  Company Number: None

PATIENT
  Age: 71 Year
  Sex: Male

DRUGS (1)
  1. HYDROCHLOROTHIAZIDE. [Suspect]
     Active Substance: HYDROCHLOROTHIAZIDE
     Indication: HYPERTENSION
     Route: 048
     Dates: start: 20170921, end: 20180217

REACTIONS (7)
  - Hypertension [None]
  - Swelling [None]
  - Dyslipidaemia [None]
  - Dyspnoea [None]
  - Muscle spasms [None]
  - Urinary retention [None]
  - Sinusitis [None]

NARRATIVE: CASE EVENT DATE: 20180217
